FAERS Safety Report 7760219-9 (Version None)
Quarter: 2011Q3

REPORT INFORMATION
  Report Type: 
  Country: None (occurrence: None)
  Receive Date: 20110919
  Receipt Date: 20110913
  Transmission Date: 20111222
  Serious: Yes (Hospitalization)
  Sender: FDA-Public Use
  Company Number: US-GLAXOSMITHKLINE-A0936714B

PATIENT
  Age: 69 Year
  Sex: Female
  Weight: 53.5 kg

DRUGS (1)
  1. ELTROMBOPAG [Suspect]
     Indication: ACUTE MYELOID LEUKAEMIA
     Dosage: 300MG PER DAY
     Route: 048
     Dates: start: 20110621

REACTIONS (2)
  - ASTHENIA [None]
  - REGURGITATION [None]
